FAERS Safety Report 15917914 (Version 5)
Quarter: 2019Q2

REPORT INFORMATION
  Report Type: Spontaneous
  Country: DE (occurrence: DE)
  Receive Date: 20190205
  Receipt Date: 20190601
  Transmission Date: 20190711
  Serious: Yes (Other)
  Sender: FDA-Public Use
  Company Number: DE-AUROBINDO-AUR-APL-2018-059773

PATIENT

DRUGS (17)
  1. KISQALI [Suspect]
     Active Substance: RIBOCICLIB
     Dosage: 600 MILLIGRAM, DAILY, (21 DAYS ON /7 DAYS OFF)
     Route: 048
     Dates: start: 20180824, end: 20180906
  2. KISQALI [Suspect]
     Active Substance: RIBOCICLIB
     Dosage: 400 MILLIGRAM, ONCE A DAY
     Route: 048
     Dates: start: 20181019, end: 20181120
  3. LETROZOLE. [Suspect]
     Active Substance: LETROZOLE
     Indication: BREAST CANCER METASTATIC
     Dosage: 2.5 MILLIGRAM, DAILY
     Route: 048
     Dates: start: 20180824
  4. KISQALI [Suspect]
     Active Substance: RIBOCICLIB
     Dosage: 400 MILLIGRAM, (16 DAYS ON /7 DAYS OFF), UNK
     Route: 048
     Dates: start: 20181221
  5. KISQALI [Suspect]
     Active Substance: RIBOCICLIB
     Dosage: 400 MILLIGRAM (400 MG (21 DAYS ON /7 DAYS OFF), UNK)
     Route: 048
     Dates: start: 20181221, end: 20190117
  6. KISQALI [Suspect]
     Active Substance: RIBOCICLIB
     Dosage: 400 MILLIGRAM, (16 DAYS ON /7 DAYS OFF), UNK
     Route: 048
     Dates: start: 20181019, end: 20181115
  7. KISQALI [Suspect]
     Active Substance: RIBOCICLIB
     Indication: BREAST CANCER METASTATIC
     Dosage: 400 MILLIGRAM, ONCE A DAY
     Route: 048
  8. KISQALI [Suspect]
     Active Substance: RIBOCICLIB
     Dosage: 400 MILLIGRAM, DAILY,  (21 DAYS ON /7 DAYS OFF)
     Route: 048
     Dates: start: 20180921, end: 20181011
  9. KISQALI [Suspect]
     Active Substance: RIBOCICLIB
     Dosage: 400 MILLIGRAM
     Route: 048
     Dates: start: 20190118, end: 20190214
  10. KISQALI [Suspect]
     Active Substance: RIBOCICLIB
     Dosage: 400 MILLIGRAM,  (16 DAYS ON /7 DAYS OFF)
     Route: 048
     Dates: start: 20181121, end: 20181206
  11. KISQALI [Suspect]
     Active Substance: RIBOCICLIB
     Dosage: 400 MILLIGRAM, ONCE A DAY, (21 DAYS ON /7 DAYS OFF)
     Route: 048
     Dates: start: 20180907, end: 20180913
  12. KISQALI [Suspect]
     Active Substance: RIBOCICLIB
     Dosage: 400 MILLIGRAM (400 MG (21 DAYS ON /7 DAYS OFF), UNK)
     Route: 048
     Dates: start: 20190222, end: 20190321
  13. KISQALI [Suspect]
     Active Substance: RIBOCICLIB
     Dosage: 400 MILLIGRAM, ONCE A DAY, (21 DAYS ON /7 DAYS OFF)
     Route: 048
     Dates: start: 20180907, end: 20180920
  14. KISQALI [Suspect]
     Active Substance: RIBOCICLIB
     Dosage: 400 MILLIGRAM, DAILY, (21 DAYS ON /7 DAYS OFF)
     Route: 048
     Dates: start: 20181019, end: 20181108
  15. KISQALI [Suspect]
     Active Substance: RIBOCICLIB
     Dosage: 400 MILLIGRAM (400 MG (21 DAYS ON /7 DAYS OFF), UNK)
     Route: 048
     Dates: start: 20181121, end: 20181213
  16. KISQALI [Suspect]
     Active Substance: RIBOCICLIB
     Dosage: 400 MILLIGRAM, DAILY, (21 DAYS ON /7 DAYS OFF)
     Route: 048
     Dates: start: 20180921, end: 20181018
  17. KISQALI [Suspect]
     Active Substance: RIBOCICLIB
     Dosage: 400 MILLIGRAM (400 MG (21 DAYS ON /7 DAYS OFF), UNK)
     Route: 048
     Dates: start: 20190322

REACTIONS (5)
  - Neutropenia [Recovered/Resolved]
  - Leukopenia [Recovered/Resolved]
  - Peripheral swelling [Recovered/Resolved]
  - Basophil count increased [Unknown]
  - Haemoglobin decreased [Unknown]

NARRATIVE: CASE EVENT DATE: 20181116
